FAERS Safety Report 4680560-6 (Version None)
Quarter: 2005Q2

REPORT INFORMATION
  Report Type: 
  Country: None (occurrence: None)
  Receive Date: 20050531
  Receipt Date: 20050201
  Transmission Date: 20051028
  Serious: No
  Sender: FDA-Public Use
  Company Number: WAES 0502USA00160

PATIENT
  Age: 61 Year
  Sex: Male
  Weight: 89.3586 kg

DRUGS (7)
  1. ZETIA [Suspect]
     Indication: BLOOD CHOLESTEROL INCREASED
     Dosage: 10 MG/DAILY/PO; SEE IMAGE
     Route: 048
     Dates: start: 20040721, end: 20041214
  2. ZETIA [Suspect]
     Indication: BLOOD CHOLESTEROL INCREASED
     Dosage: 10 MG/DAILY/PO; SEE IMAGE
     Route: 048
     Dates: start: 20041215, end: 20050127
  3. LIPITOR [Suspect]
     Indication: BLOOD CHOLESTEROL INCREASED
     Dosage: 10 MG/DAILY; 5 MG DAILY
     Dates: start: 20040721, end: 20040825
  4. LIPITOR [Suspect]
     Indication: BLOOD CHOLESTEROL INCREASED
     Dosage: 10 MG/DAILY; 5 MG DAILY
     Dates: start: 20040826, end: 20041215
  5. HYDRODIURIL [Concomitant]
  6. NORVASC [Concomitant]
  7. ATENOLOL [Concomitant]

REACTIONS (5)
  - ARTHRALGIA [None]
  - BLOOD CREATINE PHOSPHOKINASE INCREASED [None]
  - DEPRESSION [None]
  - MYOPATHY [None]
  - PRESCRIBED OVERDOSE [None]
